FAERS Safety Report 8412350-2 (Version None)
Quarter: 2012Q2

REPORT INFORMATION
  Report Type: 
  Country: None (occurrence: None)
  Receive Date: 20120531
  Receipt Date: 20120531
  Transmission Date: 20120825
  Serious: Yes (Hospitalization)
  Sender: FDA-Public Use
  Company Number: None

PATIENT
  Sex: Male
  Weight: 85.9 kg

DRUGS (6)
  1. PREDNISONE [Suspect]
     Dosage: 1200 MG
  2. DOXORUBICIN HYDROCHLORIDE [Suspect]
     Dosage: 80 MG
  3. ETOPOSIDE [Suspect]
     Dosage: 400 MG
  4. VINCRISTINE SULFATE [Suspect]
     Dosage: 7.2 MG
  5. CYCLOPHOSPHAMIDE [Suspect]
     Dosage: 1500 MG
  6. RITUXIMAB (MOAB C2B8 ANTI CD20, CHIMERIC) [Suspect]
     Dosage: 750 MG

REACTIONS (3)
  - PYREXIA [None]
  - ATELECTASIS [None]
  - PLEURAL EFFUSION [None]
